FAERS Safety Report 22614435 (Version 1)
Quarter: 2023Q2

REPORT INFORMATION
  Report Type: Spontaneous
  Country: US (occurrence: US)
  Receive Date: 20230619
  Receipt Date: 20230619
  Transmission Date: 20230722
  Serious: No
  Sender: FDA-Public Use
  Company Number: US-002147023-NVSC2023US138994

PATIENT
  Sex: Female

DRUGS (1)
  1. KISQALI FEMARA CO-PACK [Suspect]
     Active Substance: LETROZOLE\RIBOCICLIB
     Indication: Product used for unknown indication
     Dosage: UNK
     Route: 065

REACTIONS (7)
  - Skin fissures [Unknown]
  - Skin discolouration [Unknown]
  - Skin exfoliation [Unknown]
  - Rash [Unknown]
  - Peripheral swelling [Unknown]
  - Burning sensation [Unknown]
  - Blister [Unknown]
